FAERS Safety Report 17323693 (Version 1)
Quarter: 2020Q1

REPORT INFORMATION
  Report Type: Spontaneous
  Country: SE (occurrence: SE)
  Receive Date: 20200127
  Receipt Date: 20200127
  Transmission Date: 20200409
  Serious: Yes (Other)
  Sender: FDA-Public Use
  Company Number: SE-TEVA-2020-SE-1173243

PATIENT
  Age: 70 Year
  Sex: Male

DRUGS (18)
  1. WARAN [Concomitant]
     Active Substance: WARFARIN SODIUM
     Dates: start: 2016
  2. MOVICOL [Concomitant]
     Active Substance: POLYETHYLENE GLYCOL 3350\POTASSIUM CHLORIDE\SODIUM BICARBONATE\SODIUM CHLORIDE
     Dates: start: 2017
  3. MONTELUKAST [Concomitant]
     Active Substance: MONTELUKAST SODIUM
     Dates: start: 2018
  4. ALVESCO [Concomitant]
     Active Substance: CICLESONIDE
     Dates: start: 2018
  5. SPORANOX [Suspect]
     Active Substance: ITRACONAZOLE
     Indication: BRONCHOPULMONARY ASPERGILLOSIS ALLERGIC
     Dosage: 10 MG/ML: 20 ML X 2
     Route: 048
     Dates: start: 20190724, end: 20190926
  6. IMOVANE [Concomitant]
     Active Substance: ZOPICLONE
     Dates: start: 2019
  7. ATORVASTATIN [Suspect]
     Active Substance: ATORVASTATIN
     Indication: ACUTE MYOCARDIAL INFARCTION
     Dosage: 10 MG 1X1
     Route: 048
     Dates: start: 2016, end: 20191011
  8. SPIRIVA RESPIMAT [Concomitant]
     Active Substance: TIOTROPIUM BROMIDE
     Dates: start: 2017
  9. ATARAX [Concomitant]
     Active Substance: HYDROXYZINE HYDROCHLORIDE
     Dates: start: 2019
  10. RAMIPRIL. [Concomitant]
     Active Substance: RAMIPRIL
     Dates: start: 2017
  11. BISOPROLOL [Concomitant]
     Active Substance: BISOPROLOL
     Dates: start: 2016
  12. KALCIPOS-D FORTE [Concomitant]
     Active Substance: CALCIUM CARBONATE\CHOLECALCIFEROL
     Dates: start: 20190724
  13. BRICANYL [Concomitant]
     Active Substance: TERBUTALINE SULFATE
     Dates: start: 2017
  14. INNOVAIR [Concomitant]
     Active Substance: BECLOMETHASONE DIPROPIONATE\FORMOTEROL
     Dates: start: 2018
  15. PREDNISOLONE. [Concomitant]
     Active Substance: PREDNISOLONE
     Dates: start: 2019
  16. FURIX [Concomitant]
     Dates: start: 2019
  17. ALVEDON [Concomitant]
     Active Substance: ACETAMINOPHEN
     Dates: start: 2019
  18. ACETYLCYSTEINE. [Concomitant]
     Active Substance: ACETYLCYSTEINE
     Dates: start: 2017

REACTIONS (1)
  - Polyneuropathy [Not Recovered/Not Resolved]

NARRATIVE: CASE EVENT DATE: 20190926
